FAERS Safety Report 21776669 (Version 1)
Quarter: 2022Q4

REPORT INFORMATION
  Report Type: Spontaneous
  Country: US (occurrence: US)
  Receive Date: 20221226
  Receipt Date: 20221226
  Transmission Date: 20230112
  Serious: No
  Sender: FDA-Public Use
  Company Number: US-002147023-NVSC2022US297431

PATIENT
  Sex: Female
  Weight: 11 kg

DRUGS (1)
  1. KYMRIAH [Suspect]
     Active Substance: TISAGENLECLEUCEL
     Indication: Acute lymphocytic leukaemia
     Dosage: 3.6E6 CAR POSITIVE VIABLE T CELLS/KG BODY WEIGHT, ONCE/SINGLE
     Route: 042
     Dates: start: 20221118

REACTIONS (1)
  - Remission not achieved [Unknown]
